FAERS Safety Report 25083679 (Version 1)
Quarter: 2025Q1

REPORT INFORMATION
  Report Type: Spontaneous
  Country: US (occurrence: None)
  Receive Date: 20250314
  Receipt Date: 20250314
  Transmission Date: 20250409
  Serious: No
  Sender: FDA-CTU
  Company Number: None

PATIENT
  Sex: Male

DRUGS (9)
  1. TERIPARATIDE [Suspect]
     Active Substance: TERIPARATIDE
     Indication: Osteoporotic fracture
     Dosage: 20 MCG 1 TIME A DAY UNDER THE SKIN
     Route: 058
  2. ENTECAVIR [Concomitant]
     Active Substance: ENTECAVIR
  3. BLUNT FILTER NEEDL 18GX1-1/2 [Concomitant]
  4. NORMAL SALINE FLUSH (10ML) [Concomitant]
  5. MYFORTIC [Concomitant]
     Active Substance: MYCOPHENOLATE SODIUM
  6. ADVATE [Concomitant]
     Active Substance: ANTIHEMOPHILIC FACTOR, HUMAN RECOMBINANT
  7. PREDNISONE [Concomitant]
     Active Substance: PREDNISONE
  8. HEMLIBRA [Concomitant]
     Active Substance: EMICIZUMAB-KXWH
  9. TACROLIMUS (BIOCON) [Concomitant]

REACTIONS (1)
  - Cerebrovascular accident [None]
